FAERS Safety Report 18996507 (Version 1)
Quarter: 2021Q1

REPORT INFORMATION
  Report Type: Spontaneous
  Country: US (occurrence: US)
  Receive Date: 20210310
  Receipt Date: 20210310
  Transmission Date: 20210420
  Serious: Yes (Hospitalization)
  Sender: FDA-Public Use
  Company Number: None

PATIENT
  Age: 72 Year
  Sex: Female

DRUGS (16)
  1. VERAPAMIL [Concomitant]
     Active Substance: VERAPAMIL HYDROCHLORIDE
  2. DIGOXIN. [Concomitant]
     Active Substance: DIGOXIN
  3. HYDROCODONE [Concomitant]
     Active Substance: HYDROCODONE
  4. FLUOXETINE [Concomitant]
     Active Substance: FLUOXETINE HYDROCHLORIDE
  5. ALPRAZOLAM. [Concomitant]
     Active Substance: ALPRAZOLAM
  6. SUCRALFATE. [Concomitant]
     Active Substance: SUCRALFATE
  7. TACROLIMUS, 1MG [Suspect]
     Active Substance: TACROLIMUS
     Indication: LUNG TRANSPLANT
     Route: 048
     Dates: start: 20190404
  8. RANITIDINE. [Concomitant]
     Active Substance: RANITIDINE
  9. PANTOPRAZOLE [Concomitant]
     Active Substance: PANTOPRAZOLE
  10. ONDANSENTRON [Concomitant]
  11. METOPROLOL SUCC [Concomitant]
     Active Substance: METOPROLOL SUCCINATE
  12. LOSARTAN POTASSIUM. [Concomitant]
     Active Substance: LOSARTAN POTASSIUM
  13. SIROLIMUS, 1MG [Suspect]
     Active Substance: SIROLIMUS
     Indication: LUNG TRANSPLANT
     Route: 048
     Dates: start: 20200915
  14. BUMETADINE [Concomitant]
     Active Substance: BUMETANIDE
  15. AMLODIPINE [Concomitant]
     Active Substance: AMLODIPINE BESYLATE
  16. AZATHIOPRINE. [Concomitant]
     Active Substance: AZATHIOPRINE

REACTIONS (2)
  - Blood pressure increased [None]
  - Therapy change [None]

NARRATIVE: CASE EVENT DATE: 20210204
